FAERS Safety Report 9684727 (Version 3)
Quarter: 2014Q1

REPORT INFORMATION
  Report Type: Spontaneous
  Country: US (occurrence: US)
  Receive Date: 20131112
  Receipt Date: 20140121
  Transmission Date: 20141002
  Serious: Yes (Other)
  Sender: FDA-Public Use
  Company Number: ALCN2013US005605

PATIENT
  Age: 80 Year
  Sex: Male
  Weight: 68.27 kg

DRUGS (1)
  1. ILEVRO [Suspect]
     Indication: PREOPERATIVE CARE
     Dosage: 1 GTT, QD
     Route: 047
     Dates: start: 20130805

REACTIONS (3)
  - Ulcerative keratitis [Unknown]
  - Medication error [Unknown]
  - Corneal perforation [Recovered/Resolved with Sequelae]
